FAERS Safety Report 9576665 (Version 1)
Quarter: 2013Q4

REPORT INFORMATION
  Report Type: Spontaneous
  Country: US (occurrence: US)
  Receive Date: 20131001
  Receipt Date: 20131001
  Transmission Date: 20140711
  Serious: No
  Sender: FDA-Public Use
  Company Number: US-AMGEN-USASP2013004711

PATIENT
  Age: 54 Year
  Sex: Male

DRUGS (2)
  1. ENBREL [Suspect]
     Indication: REITER^S SYNDROME
     Dosage: 50 MG, QWK
     Route: 058
     Dates: start: 20120711, end: 20130111
  2. HUMIRA [Concomitant]
     Dosage: UNK

REACTIONS (3)
  - Endodontic procedure [Unknown]
  - Gingival swelling [Unknown]
  - Post procedural infection [Unknown]
